FAERS Safety Report 4371944-4 (Version None)
Quarter: 2004Q2

REPORT INFORMATION
  Report Type: 
  Country: None (occurrence: None)
  Receive Date: 20040601
  Receipt Date: 20040518
  Transmission Date: 20050107
  Serious: Yes (Hospitalization)
  Sender: FDA-Public Use
  Company Number: HQWYE039120MAY04

PATIENT
  Age: 35 Year
  Sex: Male

DRUGS (3)
  1. EFFEXOR [Suspect]
     Dosage: 75 MG 1X PER 1 DAY, ORAL; DOSAGE UNSPECIFED, ORAL
     Route: 048
  2. OLANZAPINE [Suspect]
     Dosage: 5 MG 1X PER 1 DAY
  3. VALPROIC ACID [Suspect]
     Dosage: 1500 MG 1X PER 1 DAY; DOSAGE UNSPECIFIED

REACTIONS (3)
  - DIABETES MELLITUS INSULIN-DEPENDENT [None]
  - DIABETIC KETOACIDOSIS [None]
  - WEIGHT INCREASED [None]
